FAERS Safety Report 16751437 (Version 1)
Quarter: 2019Q3

REPORT INFORMATION
  Report Type: Report from Study
  Country: CN (occurrence: CN)
  Receive Date: 20190828
  Receipt Date: 20190828
  Transmission Date: 20191005
  Serious: Yes (Other)
  Sender: FDA-Public Use
  Company Number: CN-JNJFOC-20190825363

PATIENT

DRUGS (1)
  1. TRIATOP [Suspect]
     Active Substance: KETOCONAZOLE
     Indication: TINEA VERSICOLOUR
     Route: 061

REACTIONS (4)
  - Scar [Unknown]
  - Wound infection [Unknown]
  - Retinal pigmentation [Unknown]
  - Rash [Unknown]
